FAERS Safety Report 15500470 (Version 1)
Quarter: 2018Q4

REPORT INFORMATION
  Report Type: Spontaneous
  Country: US (occurrence: US)
  Receive Date: 20181015
  Receipt Date: 20181015
  Transmission Date: 20190205
  Serious: Yes (Disabling, Other)
  Sender: FDA-Public Use
  Company Number: None

PATIENT
  Age: 60 Year
  Sex: Female
  Weight: 76.5 kg

DRUGS (1)
  1. LEVOFLOXACIN 750MG [Suspect]
     Active Substance: LEVOFLOXACIN
     Indication: PNEUMONIA
     Dosage: ?          QUANTITY:7 TABLET(S);?
     Route: 048
     Dates: start: 20181002, end: 20181007

REACTIONS (9)
  - Respiratory disorder [None]
  - Oral pain [None]
  - Oral discomfort [None]
  - Tongue discomfort [None]
  - Dysphagia [None]
  - Chapped lips [None]
  - Palatal disorder [None]
  - Thirst [None]
  - Glossodynia [None]

NARRATIVE: CASE EVENT DATE: 20181006
